FAERS Safety Report 8541475-6 (Version None)
Quarter: 2012Q3

REPORT INFORMATION
  Report Type: 
  Country: None (occurrence: None)
  Receive Date: 20120726
  Receipt Date: 20120206
  Transmission Date: 20120928
  Serious: No
  Sender: FDA-Public Use
  Company Number: US-ASTRAZENECA-2011SE56074

PATIENT
  Age: 52 Year
  Sex: Male
  Weight: 86.2 kg

DRUGS (11)
  1. SEROQUEL [Suspect]
     Indication: MENTAL IMPAIRMENT
     Route: 048
     Dates: start: 20011001
  2. ASPIRIN [Concomitant]
     Indication: CARDIAC DISORDER
  3. TOPAMAX [Concomitant]
     Indication: BIPOLAR DISORDER
  4. METFORMIN HYDROCHLORIDE [Concomitant]
     Indication: DIABETES MELLITUS
  5. SEROQUEL [Suspect]
     Dosage: TWO TABLETS AT BEDTIME
     Route: 048
  6. FISH OIL [Concomitant]
     Indication: CARDIAC DISORDER
  7. SEROQUEL [Suspect]
     Indication: BIPOLAR DISORDER
     Route: 048
     Dates: start: 20011001
  8. DEPAKOTE [Concomitant]
     Indication: BIPOLAR DISORDER
  9. SIMVASTATIN [Concomitant]
     Indication: BLOOD CHOLESTEROL ABNORMAL
  10. SEROQUEL [Suspect]
     Dosage: TWO TABLETS AT BEDTIME
     Route: 048
  11. LOVOXIL [Concomitant]
     Indication: THYROID DISORDER

REACTIONS (7)
  - OFF LABEL USE [None]
  - FOOD CRAVING [None]
  - INCORRECT DRUG ADMINISTRATION DURATION [None]
  - THROMBOSIS [None]
  - APPETITE DISORDER [None]
  - DRY MOUTH [None]
  - SOMNOLENCE [None]
